FAERS Safety Report 19171494 (Version 1)
Quarter: 2021Q2

REPORT INFORMATION
  Report Type: Spontaneous
  Country: US (occurrence: US)
  Receive Date: 20210422
  Receipt Date: 20210422
  Transmission Date: 20210717
  Serious: No
  Sender: FDA-Public Use
  Company Number: None

PATIENT
  Age: 42 Year
  Sex: Female
  Weight: 87 kg

DRUGS (1)
  1. LASMIDITAN (LASMIDITAN 50MG TAB) [Suspect]
     Active Substance: LASMIDITAN
     Indication: MIGRAINE
     Route: 048
     Dates: start: 20210317, end: 20210413

REACTIONS (1)
  - Restlessness [None]

NARRATIVE: CASE EVENT DATE: 20210413
